FAERS Safety Report 15851774 (Version 1)
Quarter: 2019Q1

REPORT INFORMATION
  Report Type: Spontaneous
  Country: CN (occurrence: CN)
  Receive Date: 20190122
  Receipt Date: 20190122
  Transmission Date: 20190417
  Serious: Yes (Death)
  Sender: FDA-Public Use
  Company Number: CN-ROCHE-2246899

PATIENT
  Age: 40 Year
  Sex: Female

DRUGS (24)
  1. CYTARABINE. [Concomitant]
     Active Substance: CYTARABINE
     Dosage: Q12H,D2,D3
     Route: 042
     Dates: start: 201704
  2. HEXADECADROL [Concomitant]
     Route: 065
     Dates: start: 201711
  3. VINDESINE [Concomitant]
     Active Substance: VINDESINE
     Dosage: D1
     Route: 042
     Dates: start: 201702
  4. MESNA. [Concomitant]
     Active Substance: MESNA
     Route: 065
     Dates: start: 201709
  5. LENALIDOMIDE [Concomitant]
     Active Substance: LENALIDOMIDE
     Route: 065
     Dates: start: 201709
  6. EPIRUBICIN [Concomitant]
     Active Substance: EPIRUBICIN
     Dosage: D4
     Route: 042
     Dates: start: 201704
  7. METHOTREXATE. [Concomitant]
     Active Substance: METHOTREXATE
     Dosage: D1
     Route: 042
     Dates: start: 201704
  8. GEMCITABINE [Concomitant]
     Active Substance: GEMCITABINE\GEMCITABINE HYDROCHLORIDE
     Route: 065
     Dates: start: 201711
  9. LENALIDOMIDE [Concomitant]
     Active Substance: LENALIDOMIDE
     Route: 065
     Dates: start: 201711
  10. VINCRISTINE [Concomitant]
     Active Substance: VINCRISTINE
     Route: 065
     Dates: start: 201707
  11. MITOXANTRONE [Concomitant]
     Active Substance: MITOXANTRONE HYDROCHLORIDE
     Route: 065
     Dates: start: 201709
  12. ETOPOSIDE. [Concomitant]
     Active Substance: ETOPOSIDE
     Route: 065
     Dates: start: 201709
  13. RITUXIMAB. [Suspect]
     Active Substance: RITUXIMAB
     Indication: DIFFUSE LARGE B-CELL LYMPHOMA
     Dosage: D0
     Route: 042
     Dates: start: 201702
  14. CYCLOPHOSPHAMIDE. [Concomitant]
     Active Substance: CYCLOPHOSPHAMIDE
     Dosage: Q12H,D1-D3
     Route: 042
     Dates: start: 201704
  15. DEXAMETHASONE. [Concomitant]
     Active Substance: DEXAMETHASONE
     Dosage: D1-D4,D11-D14
     Route: 048
     Dates: start: 201704
  16. HEXADECADROL [Concomitant]
     Route: 065
     Dates: start: 201707
  17. CISPLATINUM [Concomitant]
     Active Substance: CISPLATIN
     Route: 065
     Dates: start: 201711
  18. EPIRUBICIN [Concomitant]
     Active Substance: EPIRUBICIN
     Dosage: D1
     Route: 042
     Dates: start: 201702
  19. VINDESINE [Concomitant]
     Active Substance: VINDESINE
     Dosage: D4,D11
     Route: 042
     Dates: start: 201704
  20. PREDNISONE. [Concomitant]
     Active Substance: PREDNISONE
     Dosage: D1-D5
     Route: 048
     Dates: start: 201702
  21. IFOSFAMIDE. [Concomitant]
     Active Substance: IFOSFAMIDE
     Route: 065
     Dates: start: 201709
  22. CYCLOPHOSPHAMIDE. [Concomitant]
     Active Substance: CYCLOPHOSPHAMIDE
     Dosage: D1
     Route: 042
     Dates: start: 201702
  23. DOXORUBICIN [Concomitant]
     Active Substance: DOXORUBICIN
     Route: 065
     Dates: start: 201707
  24. METHOTREXATE. [Concomitant]
     Active Substance: METHOTREXATE
     Route: 065
     Dates: start: 201707

REACTIONS (2)
  - Death [Fatal]
  - Disease progression [Unknown]
